FAERS Safety Report 5751165-0 (Version None)
Quarter: 2008Q2

REPORT INFORMATION
  Report Type: 
  Country: None (occurrence: None)
  Receive Date: 20080527
  Receipt Date: 20080318
  Transmission Date: 20081010
  Serious: Yes (Hospitalization, Disabling, Other)
  Sender: FDA-Public Use
  Company Number: WAES 0801USA01823

PATIENT
  Age: 58 Year
  Sex: Male
  Weight: 133.3575 kg

DRUGS (3)
  1. JANUVIA [Suspect]
     Indication: TYPE 2 DIABETES MELLITUS
     Dosage: 100 MG/DAILY/PO
     Route: 048
     Dates: start: 20071225
  2. AMARYL [Concomitant]
  3. METFORMIN [Concomitant]

REACTIONS (2)
  - DIARRHOEA [None]
  - VOMITING [None]
